FAERS Safety Report 6316855-X (Version None)
Quarter: 2009Q3

REPORT INFORMATION
  Report Type: 
  Country: None (occurrence: None)
  Receive Date: 20090820
  Receipt Date: 20090817
  Transmission Date: 20100115
  Serious: Yes (Other)
  Sender: FDA-Public Use
  Company Number: US-ROCHE-650893

PATIENT
  Age: 6 Year
  Sex: Male
  Weight: 22.7 kg

DRUGS (1)
  1. TAMIFLU [Suspect]
     Dosage: DOSE:  3.75 TEASPOONS, FREQUENCY: TWICE IN 8 HOURS
     Route: 048
     Dates: start: 20090813, end: 20090813

REACTIONS (2)
  - HEPATIC ENZYME INCREASED [None]
  - INCORRECT DOSE ADMINISTERED [None]
